FAERS Safety Report 8255757-9 (Version None)
Quarter: 2012Q2

REPORT INFORMATION
  Report Type: 
  Country: None (occurrence: None)
  Receive Date: 20120403
  Receipt Date: 20120329
  Transmission Date: 20120825
  Serious: Yes (Hospitalization, Other)
  Sender: FDA-Public Use
  Company Number: US-AMGEN-USASP2011047285

PATIENT
  Age: 85 Year
  Sex: Female

DRUGS (13)
  1. REMERON [Concomitant]
     Dosage: 30 MG, QD
  2. SYNTHROID [Concomitant]
     Dosage: 0.125 MG, QD
  3. LIDODERM [Concomitant]
     Dosage: 5 %, Q12H
     Dates: start: 20100528
  4. PROTONIX [Concomitant]
     Dosage: 40 MG, QD
  5. PROLIA [Suspect]
     Indication: OSTEOPOROSIS POSTMENOPAUSAL
     Dosage: 60 MG, Q6MO
     Route: 058
     Dates: start: 20110906
  6. AMBIEN [Concomitant]
     Dosage: 10 MG, QHS
  7. PLAVIX [Concomitant]
     Dosage: 75 MG, QD
     Dates: start: 20110912
  8. VALIUM [Concomitant]
     Dosage: 5 MG, PRN
  9. ZOCOR [Concomitant]
     Dosage: 10 MG, QD
  10. VITAMIN D [Concomitant]
     Dosage: UNK
  11. ULTRAM [Concomitant]
     Dosage: 50 MG, PRN
  12. OMACOR [Concomitant]
     Dosage: UNK UNK, QD
  13. CALCIUM CARBONATE [Concomitant]
     Dosage: UNK

REACTIONS (7)
  - INTERVERTEBRAL DISC DEGENERATION [None]
  - RASH VESICULAR [None]
  - PRURITUS [None]
  - OSTEOARTHRITIS [None]
  - THROAT IRRITATION [None]
  - BACK PAIN [None]
  - HYPERSENSITIVITY [None]
